FAERS Safety Report 5192363-7 (Version None)
Quarter: 2006Q4

REPORT INFORMATION
  Report Type: 
  Country: None (occurrence: None)
  Receive Date: 20061227
  Receipt Date: 20061215
  Transmission Date: 20070319
  Serious: Yes (Other)
  Sender: FDA-Public Use
  Company Number: FR-PFIZER INC-2006154276

PATIENT
  Age: 95 Year
  Sex: Female

DRUGS (2)
  1. TRIFLUCAN [Suspect]
  2. ANTITHROMBOTIC AGENTS [Interacting]

REACTIONS (2)
  - DRUG INTERACTION [None]
  - INTERNATIONAL NORMALISED RATIO ABNORMAL [None]
